FAERS Safety Report 11888238 (Version 1)
Quarter: 2016Q1

REPORT INFORMATION
  Report Type: Spontaneous
  Country: GR (occurrence: GR)
  Receive Date: 20160105
  Receipt Date: 20160105
  Transmission Date: 20160526
  Serious: Yes (Other)
  Sender: FDA-Public Use
  Company Number: PHHY2015GR171969

PATIENT
  Sex: Female

DRUGS (10)
  1. BIVOL [Concomitant]
     Indication: HYPERTENSION
     Route: 048
  2. AFINITOR [Suspect]
     Active Substance: EVEROLIMUS
     Dosage: 5 MG, QD
     Route: 048
  3. HYALURONIC ACID [Concomitant]
     Active Substance: HYALURONIC ACID
     Indication: PRODUCT USED FOR UNKNOWN INDICATION
     Route: 065
  4. GLUCOPHAGE [Concomitant]
     Active Substance: METFORMIN HYDROCHLORIDE
     Indication: BLOOD GLUCOSE
     Route: 048
  5. KEPPRA [Concomitant]
     Active Substance: LEVETIRACETAM
     Indication: PROPHYLAXIS
     Route: 048
  6. EXEMESTANE. [Concomitant]
     Active Substance: EXEMESTANE
     Indication: PRODUCT USED FOR UNKNOWN INDICATION
     Route: 065
  7. AFINITOR [Suspect]
     Active Substance: EVEROLIMUS
     Indication: BONE CANCER
     Dosage: 10 MG, UNK
     Route: 065
  8. OMEGA 3 [Concomitant]
     Active Substance: OMEGA-3 FATTY ACIDS
     Indication: PRODUCT USED FOR UNKNOWN INDICATION
     Route: 048
  9. PANADOL [Concomitant]
     Active Substance: ACETAMINOPHEN
     Indication: PAIN
     Route: 048
  10. OLARTAN [Concomitant]
     Indication: HYPERTENSION
     Route: 048

REACTIONS (8)
  - Hepatitis cholestatic [Unknown]
  - Dizziness [Not Recovered/Not Resolved]
  - Product use issue [Unknown]
  - Haematocrit decreased [Unknown]
  - Blood glucose increased [Recovered/Resolved]
  - Gamma-glutamyltransferase increased [Unknown]
  - Drug-induced liver injury [Unknown]
  - Nausea [Not Recovered/Not Resolved]
